FAERS Safety Report 4449495-8 (Version None)
Quarter: 2004Q3

REPORT INFORMATION
  Report Type: 
  Country: None (occurrence: None)
  Receive Date: 20040913
  Receipt Date: 20040810
  Transmission Date: 20050211
  Serious: Yes (Death)
  Sender: FDA-Public Use
  Company Number: 2004-BP-04599AU

PATIENT
  Age: 65 Year
  Sex: Female

DRUGS (2)
  1. SPIRIVA [Suspect]
     Dosage: NR (18MCG, INHALED ONCE DAILY), IH
     Route: 055
     Dates: start: 20030422
  2. COMBIVENT (COMBIVENT) (NR) [Concomitant]

REACTIONS (1)
  - SUDDEN DEATH [None]
